FAERS Safety Report 25230094 (Version 2)
Quarter: 2025Q2

REPORT INFORMATION
  Report Type: Report from Study
  Country: US (occurrence: US)
  Receive Date: 20250423
  Receipt Date: 20250520
  Transmission Date: 20250716
  Serious: Yes (Hospitalization, Other)
  Sender: MALLINCKRODT
  Company Number: US-MALLINCKRODT-MNK202502193

PATIENT
  Sex: Female

DRUGS (3)
  1. CORTICOTROPIN [Suspect]
     Active Substance: CORTICOTROPIN
     Indication: Systemic lupus erythematosus
  2. CORTICOTROPIN [Suspect]
     Active Substance: CORTICOTROPIN
  3. BENLYSTA [Concomitant]
     Active Substance: BELIMUMAB

REACTIONS (14)
  - Heart rate increased [Unknown]
  - Suicidal ideation [Recovered/Resolved]
  - Stress [Unknown]
  - Autoimmune disorder [Unknown]
  - Systemic lupus erythematosus [Not Recovered/Not Resolved]
  - Urinary tract infection [Unknown]
  - Seizure [Unknown]
  - Migraine [Unknown]
  - Brain fog [Unknown]
  - Weight decreased [Unknown]
  - Renal disorder [Unknown]
  - Dental caries [Unknown]
  - Ill-defined disorder [Unknown]
  - Depression [Unknown]
